FAERS Safety Report 10205688 (Version 2)
Quarter: 2014Q2

REPORT INFORMATION
  Report Type: Report from Study
  Country: DE (occurrence: DE)
  Receive Date: 20140530
  Receipt Date: 20140617
  Transmission Date: 20141212
  Serious: Yes (Other)
  Sender: FDA-Public Use
  Company Number: DE-ROCHE-1408345

PATIENT
  Age: 85 Year
  Sex: Female

DRUGS (3)
  1. RANIBIZUMAB [Suspect]
     Indication: AGE-RELATED MACULAR DEGENERATION
     Route: 050
     Dates: start: 20140224
  2. RANIBIZUMAB [Suspect]
     Route: 050
     Dates: start: 20140324
  3. RANIBIZUMAB [Suspect]
     Route: 050
     Dates: start: 20140423

REACTIONS (1)
  - Hypertensive crisis [Unknown]
